FAERS Safety Report 9171328 (Version 2)
Quarter: 2013Q2

REPORT INFORMATION
  Report Type: Spontaneous
  Country: DE (occurrence: DE)
  Receive Date: 20130319
  Receipt Date: 20130402
  Transmission Date: 20140414
  Serious: Yes (Hospitalization)
  Sender: FDA-Public Use
  Company Number: DE-ROCHE-1203691

PATIENT
  Age: 81 Year
  Sex: Male
  Weight: 89 kg

DRUGS (6)
  1. MABTHERA [Suspect]
     Indication: CHRONIC LYMPHOCYTIC LEUKAEMIA
     Route: 042
     Dates: start: 20121127
  2. ALLOPURINOL [Concomitant]
     Route: 048
  3. BISOPROLOL [Concomitant]
     Route: 048
  4. PANTOZOL [Concomitant]
     Route: 048
  5. TAMSULOSIN [Concomitant]
     Route: 065
  6. TARKA [Concomitant]
     Route: 048

REACTIONS (7)
  - Incontinence [Recovering/Resolving]
  - Visual impairment [Recovering/Resolving]
  - Pyrexia [Recovering/Resolving]
  - Vertigo [Recovering/Resolving]
  - Nausea [Recovering/Resolving]
  - Confusional state [Recovering/Resolving]
  - C-reactive protein increased [Recovering/Resolving]
